FAERS Safety Report 22327293 (Version 1)
Quarter: 2023Q2

REPORT INFORMATION
  Report Type: Spontaneous
  Country: US (occurrence: US)
  Receive Date: 20230516
  Receipt Date: 20230516
  Transmission Date: 20230721
  Serious: No
  Sender: FDA-Public Use
  Company Number: US-RADIUS HEALTH INC.-2022US005851

PATIENT
  Sex: Female

DRUGS (2)
  1. TYMLOS [Suspect]
     Active Substance: ABALOPARATIDE
     Indication: Osteoporosis
     Dosage: 80 MICROGRAM, QD
     Route: 058
     Dates: start: 20221201
  2. Vit D/Ca [Concomitant]
     Indication: Product used for unknown indication

REACTIONS (9)
  - Drug intolerance [Recovered/Resolved]
  - Depressed mood [Unknown]
  - Hyperhidrosis [Recovered/Resolved]
  - Dizziness [Unknown]
  - Nausea [Recovered/Resolved]
  - Constipation [Unknown]
  - Headache [Unknown]
  - Vomiting [Recovered/Resolved]
  - Product administered to patient of inappropriate age [Recovered/Resolved]
